FAERS Safety Report 17544425 (Version 1)
Quarter: 2020Q1

REPORT INFORMATION
  Report Type: Spontaneous
  Country: US (occurrence: US)
  Receive Date: 20200316
  Receipt Date: 20200316
  Transmission Date: 20200409
  Serious: Yes (Other)
  Sender: FDA-Public Use
  Company Number: US-LUPIN PHARMACEUTICALS INC.-2020-00645

PATIENT
  Age: 18 Year
  Sex: Female

DRUGS (1)
  1. SERTRALINE HYDROCHLORIDE TABLETS USP, 25 MG [Suspect]
     Active Substance: SERTRALINE HYDROCHLORIDE
     Indication: PREMENSTRUAL DYSPHORIC DISORDER
     Dosage: UNK
     Route: 065
     Dates: start: 201912

REACTIONS (4)
  - Product substitution issue [Unknown]
  - Panic attack [Not Recovered/Not Resolved]
  - Malaise [Not Recovered/Not Resolved]
  - Poor quality product administered [Unknown]

NARRATIVE: CASE EVENT DATE: 201912
